FAERS Safety Report 4287475-6 (Version None)
Quarter: 2004Q1

REPORT INFORMATION
  Report Type: 
  Country: None (occurrence: None)
  Receive Date: 20040209
  Receipt Date: 20030707
  Transmission Date: 20041129
  Serious: No
  Sender: FDA-Public Use
  Company Number: US-GLAXOSMITHKLINE-A0415614A

PATIENT
  Age: 18 Year
  Sex: Female

DRUGS (2)
  1. PAXIL CR [Suspect]
     Indication: DEPRESSION
     Route: 048
     Dates: start: 20020201, end: 20020701
  2. MULTIVITAMIN [Concomitant]

REACTIONS (3)
  - DISORIENTATION [None]
  - HEADACHE [None]
  - PAIN [None]
